FAERS Safety Report 17035471 (Version 1)
Quarter: 2019Q4

REPORT INFORMATION
  Report Type: Report from Study
  Country: US (occurrence: US)
  Receive Date: 20191115
  Receipt Date: 20191115
  Transmission Date: 20200122
  Serious: Yes (Hospitalization)
  Sender: FDA-Public Use
  Company Number: NVSC2019US016461

PATIENT
  Age: 11 Year
  Sex: Female
  Weight: 51 kg

DRUGS (4)
  1. GSK2118436 [Suspect]
     Active Substance: DABRAFENIB
     Dosage: 100 MG, BID
     Route: 048
     Dates: start: 20191018
  2. GSK1120212 [Suspect]
     Active Substance: TRAMETINIB
     Dosage: 1 MG, QD
     Route: 048
     Dates: start: 20191017
  3. GSK1120212 [Suspect]
     Active Substance: TRAMETINIB
     Indication: GLIOMA
     Dosage: 1.5 MG, QD
     Route: 048
     Dates: start: 20190904
  4. GSK2118436 [Suspect]
     Active Substance: DABRAFENIB
     Indication: GLIOMA
     Dosage: 125 MG, BID
     Route: 048
     Dates: start: 20190904

REACTIONS (3)
  - Influenza like illness [Recovered/Resolved]
  - Rash [Recovered/Resolved]
  - Pyrexia [Recovered/Resolved]

NARRATIVE: CASE EVENT DATE: 20191010
